FAERS Safety Report 25193599 (Version 3)
Quarter: 2025Q2

REPORT INFORMATION
  Report Type: Report from Study
  Country: US (occurrence: US)
  Receive Date: 20250414
  Receipt Date: 20250513
  Transmission Date: 20250717
  Serious: Yes (Other)
  Sender: ABBVIE
  Company Number: US-ABBVIE-6213880

PATIENT
  Age: 75 Year
  Sex: Female
  Weight: 95.254 kg

DRUGS (1)
  1. SKYRIZI [Suspect]
     Active Substance: RISANKIZUMAB-RZAA
     Indication: Psoriasis
     Dosage: FORM STRENGTH: 150
     Route: 058
     Dates: start: 20250301

REACTIONS (7)
  - Mastoidectomy [Recovered/Resolved]
  - Vertigo [Not Recovered/Not Resolved]
  - Sinus disorder [Recovered/Resolved]
  - Vomiting [Recovering/Resolving]
  - Nasopharyngitis [Recovered/Resolved]
  - Fall [Recovering/Resolving]
  - Gastrointestinal disorder [Recovering/Resolving]

NARRATIVE: CASE EVENT DATE: 20250101
